FAERS Safety Report 8007165-3 (Version None)
Quarter: 2011Q4

REPORT INFORMATION
  Report Type: 
  Country: None (occurrence: None)
  Receive Date: 20111227
  Receipt Date: 20111220
  Transmission Date: 20120403
  Serious: Yes (Other)
  Sender: FDA-Public Use
  Company Number: US-JNJFOC-20111210201

PATIENT
  Age: 85 Year
  Sex: Female

DRUGS (1)
  1. LISTERINE WHITENING PLUS RESTORING FLUORIDE RINSE CLEAN MINT [Suspect]
     Indication: TOOTH DISCOLOURATION
     Dosage: HALF CAPFUL, FOR ABOUT FOUR DAYS
     Route: 048
     Dates: start: 20111001, end: 20110101

REACTIONS (2)
  - TONGUE DISCOLOURATION [None]
  - DYSGEUSIA [None]
